FAERS Safety Report 6292800-0 (Version None)
Quarter: 2009Q3

REPORT INFORMATION
  Report Type: 
  Country: None (occurrence: None)
  Receive Date: 20090731
  Receipt Date: 20090721
  Transmission Date: 20100115
  Serious: Yes (Life-Threatening, Hospitalization)
  Sender: FDA-Public Use
  Company Number: CA-GENENTECH-285573

PATIENT
  Sex: Male
  Weight: 40.6 kg

DRUGS (1)
  1. NUTROPIN [Suspect]
     Indication: GROWTH HORMONE DEFICIENCY
     Dosage: 1 MG, UNK
     Route: 058
     Dates: start: 20050303

REACTIONS (1)
  - MEDULLOBLASTOMA RECURRENT [None]
